FAERS Safety Report 6724300-5 (Version None)
Quarter: 2010Q2

REPORT INFORMATION
  Report Type: 
  Country: None (occurrence: None)
  Receive Date: 20100513
  Receipt Date: 20100506
  Transmission Date: 20101027
  Serious: Yes (Death, Other)
  Sender: FDA-Public Use
  Company Number: US-PURDUE-USA-2009-0038403

PATIENT
  Age: 14 Year
  Sex: Male

DRUGS (2)
  1. OXYCODONE HCL [Suspect]
     Indication: ACCIDENTAL EXPOSURE
     Dosage: 30 MG, SINGLE
     Dates: start: 20081101
  2. VALIUM [Suspect]
     Indication: ACCIDENTAL EXPOSURE
     Dosage: UNK
     Dates: start: 20081101

REACTIONS (10)
  - ACCIDENTAL EXPOSURE [None]
  - BREATH SOUNDS ABNORMAL [None]
  - DEATH [None]
  - DYSPNOEA [None]
  - LOSS OF CONSCIOUSNESS [None]
  - PRURITUS GENERALISED [None]
  - RESPIRATORY DISTRESS [None]
  - VICTIM OF CHILD ABUSE [None]
  - VICTIM OF HOMICIDE [None]
  - VOMITING [None]
